FAERS Safety Report 14185989 (Version 4)
Quarter: 2023Q4

REPORT INFORMATION
  Report Type: Report from Study
  Country: DE (occurrence: DE)
  Receive Date: 20171114
  Receipt Date: 20231229
  Transmission Date: 20240110
  Serious: Yes (Hospitalization, Other)
  Sender: FDA-Public Use
  Company Number: DE-GLAXOSMITHKLINE-DE2017GSK173840

PATIENT

DRUGS (6)
  1. DICLOFENAC SODIUM [Suspect]
     Active Substance: DICLOFENAC\DICLOFENAC SODIUM
     Indication: Ankylosing spondylitis
     Dosage: 150 MG, PRN
     Route: 048
     Dates: start: 20170827, end: 20171015
  2. ASPIRIN [Suspect]
     Active Substance: ASPIRIN
     Indication: Prophylaxis
     Dosage: 100 MG, QD
     Route: 048
     Dates: start: 20150929, end: 20171015
  3. ASPIRIN [Suspect]
     Active Substance: ASPIRIN
     Dosage: 200 MG, QD (100 MG, BID)
     Route: 048
     Dates: start: 20171016, end: 20171024
  4. ASPIRIN [Suspect]
     Active Substance: ASPIRIN
     Dosage: 100 MG, QD
     Route: 048
     Dates: start: 20171025
  5. SECUKINUMAB [Suspect]
     Active Substance: SECUKINUMAB
     Indication: Ankylosing spondylitis
     Dosage: 150 MG (CODE NOT BROKEN)
     Route: 058
     Dates: start: 20150901
  6. NALOXONE HYDROCHLORIDE\TILIDINE HYDROCHLORIDE [Concomitant]
     Active Substance: NALOXONE HYDROCHLORIDE\TILIDINE HYDROCHLORIDE
     Indication: Ankylosing spondylitis
     Dosage: 200 MG, QD (100 MG, BID)
     Route: 048
     Dates: start: 20120425

REACTIONS (4)
  - Gastritis erosive [Recovering/Resolving]
  - Duodenitis [Unknown]
  - Fatigue [Recovering/Resolving]
  - Weight decreased [Recovered/Resolved]

NARRATIVE: CASE EVENT DATE: 20171024
